FAERS Safety Report 5485360-5 (Version None)
Quarter: 2007Q4

REPORT INFORMATION
  Report Type: 
  Country: None (occurrence: None)
  Receive Date: 20071015
  Receipt Date: 20071005
  Transmission Date: 20080405
  Serious: Yes (Hospitalization)
  Sender: FDA-Public Use
  Company Number: IT-BRISTOL-MYERS SQUIBB COMPANY-13937602

PATIENT
  Age: 35 Year
  Sex: Female

DRUGS (6)
  1. ENDOXAN [Suspect]
     Indication: SYSTEMIC LUPUS ERYTHEMATOSUS RASH
     Route: 040
     Dates: start: 20070906, end: 20070906
  2. DELTACORTENE [Concomitant]
  3. LANSOX [Concomitant]
  4. GARDENALE [Concomitant]
  5. ASPIRIN [Concomitant]
  6. CETIRIZINE HCL [Concomitant]

REACTIONS (2)
  - HEPATOTOXICITY [None]
  - PANCREATIC ENZYMES INCREASED [None]
